FAERS Safety Report 10646401 (Version 1)
Quarter: 2014Q4

REPORT INFORMATION
  Report Type: Spontaneous
  Country: US (occurrence: None)
  Receive Date: 20141203
  Receipt Date: 20141203
  Transmission Date: 20150529
  Serious: No
  Sender: FDA-Public Use
  Company Number: 1405USA008183

PATIENT
  Sex: Male

DRUGS (1)
  1. GRASTEK [Suspect]
     Active Substance: PHLEUM PRATENSE POLLEN
     Indication: RHINITIS ALLERGIC
     Dosage: 2800 BAU, ONCE DAILY, SUBLINGUAL
     Route: 060
     Dates: start: 20140501, end: 201405

REACTIONS (1)
  - Stomatitis [None]

NARRATIVE: CASE EVENT DATE: 20140501
